FAERS Safety Report 8845852 (Version 1)
Quarter: 2012Q4

REPORT INFORMATION
  Report Type: 
  Country: US (occurrence: US)
  Receive Date: 20121017
  Receipt Date: 20121017
  Transmission Date: 20130627
  Serious: Yes (Hospitalization)
  Sender: FDA-Public Use
  Company Number: US-ROCHE-1117078

PATIENT
  Sex: Female

DRUGS (2)
  1. NUTROPIN [Suspect]
     Indication: RENAL FAILURE CHRONIC
     Route: 065
  2. NUTROPIN [Suspect]
     Indication: AZOTAEMIA

REACTIONS (5)
  - Postoperative wound infection [Unknown]
  - Dehydration [Unknown]
  - Gingival swelling [Unknown]
  - Oral herpes [Unknown]
  - Drug dose omission [Unknown]
